FAERS Safety Report 24054228 (Version 1)
Quarter: 2024Q3

REPORT INFORMATION
  Report Type: Spontaneous
  Country: ES (occurrence: ES)
  Receive Date: 20240705
  Receipt Date: 20240705
  Transmission Date: 20241017
  Serious: Yes (Hospitalization, Other)
  Sender: AUROBINDO
  Company Number: ES-CELLTRION HEALTHCARE HUNGARY KFT-2023ES000173

PATIENT
  Age: 69 Year
  Sex: Male
  Weight: 59.65 kg

DRUGS (13)
  1. LENALIDOMIDE [Suspect]
     Active Substance: LENALIDOMIDE
     Indication: Marginal zone lymphoma
     Dosage: 40 MILLIGRAM (LAST DOSE PRIOR TO SERIOUS ADVERSE EVENT WAS TAKEN ON 17 NOV 2022)
     Route: 065
     Dates: start: 20220922
  2. LENALIDOMIDE [Suspect]
     Active Substance: LENALIDOMIDE
     Dosage: 10 MILLIGRAM(10 MILLIGRAM, QD FOR 12 CYCLES (ON DAYS 1 TO 21))
     Route: 048
     Dates: start: 20220922
  3. LENALIDOMIDE [Suspect]
     Active Substance: LENALIDOMIDE
     Dosage: 5 MILLIGRAM(5 MILLIGRAM, QD (ON DAYS 1 T 21) FOR 12 CYCLE)
     Route: 048
     Dates: start: 20221128
  4. LENALIDOMIDE [Suspect]
     Active Substance: LENALIDOMIDE
     Dosage: 15 MILLIGRAM, ONCE A DAY
     Route: 048
     Dates: start: 20230201
  5. LENALIDOMIDE [Suspect]
     Active Substance: LENALIDOMIDE
     Dosage: 20 MILLIGRAM, ONCE A DAY
     Route: 048
     Dates: start: 20220922, end: 20230125
  6. TAFASITAMAB [Suspect]
     Active Substance: TAFASITAMAB
     Indication: Marginal zone lymphoma
     Dosage: 768 MILLIGRAM (LAST DOSE PRIOR TO SERIOUS ADVERSE EVENT WAS TAKEN ON 17 NOV 2022)
     Route: 042
     Dates: start: 20220922, end: 20230112
  7. TAFASITAMAB [Suspect]
     Active Substance: TAFASITAMAB
     Dosage: 768 MILLIGRAM (LAST DOSE PRIOR TO SERIOUS ADVERSE EVENT WAS TAKEN ON 17 NOV 2022)
     Route: 065
     Dates: end: 20220622
  8. TAFASITAMAB [Suspect]
     Active Substance: TAFASITAMAB
     Dosage: 727 MILLIGRAM
     Route: 065
     Dates: start: 20230125
  9. TAFASITAMAB [Suspect]
     Active Substance: TAFASITAMAB
     Dosage: 768 MILLIGRAM
     Route: 042
     Dates: start: 20220922, end: 20231117
  10. RITUXIMAB [Suspect]
     Active Substance: RITUXIMAB
     Indication: Marginal zone lymphoma
     Dosage: 660 MILLIGRAM
     Route: 065
     Dates: start: 20220922
  11. RITUXIMAB [Suspect]
     Active Substance: RITUXIMAB
     Dosage: 600 MILLIGRAM (LAST DOSE PRIOR TO SERIOUS ADVERSE EVENT WAS TAKEN ON 17 NOV 2022)
     Dates: start: 20220922, end: 20221117
  12. RITUXIMAB [Suspect]
     Active Substance: RITUXIMAB
     Dosage: 645 MILLIGRAM
     Route: 042
     Dates: start: 20230125
  13. RITUXIMAB [Suspect]
     Active Substance: RITUXIMAB
     Dosage: 375 MILLIGRAM
     Route: 042
     Dates: start: 20220922, end: 20230112

REACTIONS (6)
  - Respiratory failure [Unknown]
  - Lower respiratory tract infection [Recovered/Resolved]
  - Atypical pneumonia [Unknown]
  - Dyspnoea [Recovered/Resolved]
  - Off label use [Unknown]
  - Intentional product use issue [Unknown]

NARRATIVE: CASE EVENT DATE: 20221129
